FAERS Safety Report 15527908 (Version 7)
Quarter: 2019Q2

REPORT INFORMATION
  Report Type: Report from Study
  Country: US (occurrence: US)
  Receive Date: 20181018
  Receipt Date: 20190410
  Transmission Date: 20190711
  Serious: Yes (Hospitalization, Other)
  Sender: FDA-Public Use
  Company Number: US-BAYER-2018-160217

PATIENT
  Age: 49 Year
  Sex: Male

DRUGS (22)
  1. HYDROXYUREA. [Concomitant]
     Active Substance: HYDROXYUREA
  2. LORAZEPAM. [Concomitant]
     Active Substance: LORAZEPAM
  3. FLUTICASONE PROPIONATE. [Concomitant]
     Active Substance: FLUTICASONE PROPIONATE
  4. VITAMIN D3 [Concomitant]
     Active Substance: CHOLECALCIFEROL
  5. STIVARGA [Suspect]
     Active Substance: REGORAFENIB
     Indication: GASTRIC CANCER
     Dosage: 120 MG, QD
     Route: 048
     Dates: start: 20180710, end: 201807
  6. STIVARGA [Suspect]
     Active Substance: REGORAFENIB
     Indication: GASTRIC CANCER
     Dosage: 160 MG, QD (40 MG 4 TABS DAILY 21 DAYS ON 7 DAYS OFF)
     Route: 048
     Dates: start: 20180712
  7. NORCO [Concomitant]
     Active Substance: ACETAMINOPHEN\HYDROCODONE BITARTRATE
  8. FAMOTIDINE. [Concomitant]
     Active Substance: FAMOTIDINE
  9. ACYCLOVIR [ACICLOVIR] [Concomitant]
     Active Substance: ACYCLOVIR
  10. ASPIRIN EC [Concomitant]
     Active Substance: ASPIRIN
     Dosage: UNK
  11. STIVARGA [Suspect]
     Active Substance: REGORAFENIB
     Indication: GASTRIC CANCER
     Dosage: 160 MG, QD
     Route: 048
     Dates: start: 20180711
  12. ASPIRIN [ACETYLSALICYLIC ACID] [Concomitant]
     Active Substance: ASPIRIN
     Dosage: UNK
  13. STIVARGA [Suspect]
     Active Substance: REGORAFENIB
     Indication: GASTRIC CANCER
     Dosage: DAILY DOSE 120 MG (21 DAYS)
     Route: 048
  14. VITAMIN B12 [Concomitant]
     Active Substance: CYANOCOBALAMIN
  15. MAGNESIUM [Concomitant]
     Active Substance: MAGNESIUM
  16. FOLIC ACID. [Concomitant]
     Active Substance: FOLIC ACID
  17. CALCIUM [Concomitant]
     Active Substance: CALCIUM
  18. ZINC. [Concomitant]
     Active Substance: ZINC
  19. THIAMINE HCL ABBOTT [Concomitant]
  20. STIVARGA [Suspect]
     Active Substance: REGORAFENIB
     Indication: GASTRIC CANCER
     Dosage: DOSE DECREASED
  21. ALBUTEROL [SALBUTAMOL] [Concomitant]
     Active Substance: ALBUTEROL
  22. ZOFRAN [Concomitant]
     Active Substance: ONDANSETRON HYDROCHLORIDE

REACTIONS (15)
  - Malaise [None]
  - Palmar-plantar erythrodysaesthesia syndrome [None]
  - Vomiting [None]
  - Inappropriate schedule of product administration [None]
  - Blood pressure abnormal [None]
  - Nausea [None]
  - Hospitalisation [Recovered/Resolved]
  - Abdominal cavity drainage [None]
  - Glossodynia [Recovered/Resolved]
  - Product dose omission [None]
  - Blood pressure increased [Not Recovered/Not Resolved]
  - Vomiting [None]
  - Adverse drug reaction [None]
  - Off label use [None]
  - Skin exfoliation [Recovered/Resolved]

NARRATIVE: CASE EVENT DATE: 2018
